FAERS Safety Report 12672524 (Version 1)
Quarter: 2016Q3

REPORT INFORMATION
  Report Type: Spontaneous
  Country: US (occurrence: US)
  Receive Date: 20160822
  Receipt Date: 20160822
  Transmission Date: 20161109
  Serious: No
  Sender: FDA-Public Use
  Company Number: US-JNJFOC-20160713971

PATIENT
  Age: 83 Year
  Sex: Female
  Weight: 63.5 kg

DRUGS (3)
  1. WOMENS ROGAINE [Suspect]
     Active Substance: MINOXIDIL
     Indication: ALOPECIA
     Route: 061
  2. VIVISCAL [Concomitant]
     Indication: ALOPECIA
     Dosage: 4 MONTHS
     Route: 048
  3. WOMENS ROGAINE [Suspect]
     Active Substance: MINOXIDIL
     Route: 061

REACTIONS (2)
  - Off label use [Unknown]
  - Product use issue [Unknown]
